FAERS Safety Report 21950117 (Version 1)
Quarter: 2023Q1

REPORT INFORMATION
  Report Type: Spontaneous
  Country: US (occurrence: US)
  Receive Date: 20230203
  Receipt Date: 20230203
  Transmission Date: 20230417
  Serious: Yes (Other)
  Sender: FDA-Public Use
  Company Number: US-009507513-2302USA000154

PATIENT
  Sex: Male

DRUGS (6)
  1. KEYTRUDA [Suspect]
     Active Substance: PEMBROLIZUMAB
     Dosage: UNK
  2. OXYCODONE [Concomitant]
     Active Substance: OXYCODONE
  3. IPRATROPIUM [Concomitant]
     Active Substance: IPRATROPIUM
  4. SODIUM CHLORIDE [Concomitant]
     Active Substance: SODIUM CHLORIDE
  5. MUCINEX [Concomitant]
     Active Substance: GUAIFENESIN
  6. LEVOTHYROXINE [Concomitant]
     Active Substance: LEVOTHYROXINE

REACTIONS (2)
  - Renal cancer [Unknown]
  - Drug hypersensitivity [Unknown]
